FAERS Safety Report 13704916 (Version 1)
Quarter: 2017Q2

REPORT INFORMATION
  Report Type: Spontaneous
  Country: ID (occurrence: ID)
  Receive Date: 20170630
  Receipt Date: 20170630
  Transmission Date: 20170830
  Serious: Yes (Other)
  Sender: FDA-Public Use
  Company Number: ID-ROCHE-1955145

PATIENT

DRUGS (7)
  1. PLATINUM [Concomitant]
     Active Substance: PLATINUM
  2. PREDNISOLONE. [Concomitant]
     Active Substance: PREDNISOLONE
  3. MABTHERA [Suspect]
     Active Substance: RITUXIMAB
     Indication: PRODUCT USED FOR UNKNOWN INDICATION
     Route: 065
  4. ARA-C [Concomitant]
     Active Substance: CYTARABINE
  5. CYCLOPHOSPHAMIDE. [Concomitant]
     Active Substance: CYCLOPHOSPHAMIDE
  6. DOXORUBICIN [Concomitant]
     Active Substance: DOXORUBICIN
  7. VINCRISTINE [Concomitant]
     Active Substance: VINCRISTINE

REACTIONS (1)
  - Disease recurrence [Unknown]
